FAERS Safety Report 8902421 (Version 5)
Quarter: 2012Q4

REPORT INFORMATION
  Report Type: Report from Study
  Country: US (occurrence: US)
  Receive Date: 20121112
  Receipt Date: 20121205
  Transmission Date: 20130627
  Serious: Yes (Hospitalization)
  Sender: FDA-Public Use
  Company Number: US-JNJFOC-20121103990

PATIENT
  Age: 18 Year
  Sex: Male
  Weight: 68.5 kg

DRUGS (7)
  1. REMICADE [Suspect]
     Indication: INFLAMMATORY BOWEL DISEASE
     Route: 042
     Dates: start: 20090305
  2. HUMIRA [Concomitant]
     Dates: start: 20110303
  3. METHOTREXATE [Concomitant]
  4. ANTIBIOTICS [Concomitant]
     Indication: INFLAMMATORY BOWEL DISEASE
     Route: 048
  5. AUGMENTIN [Concomitant]
  6. FOLIC ACID [Concomitant]
  7. PREVACID [Concomitant]

REACTIONS (1)
  - Anal abscess [Recovered/Resolved]
